FAERS Safety Report 9732393 (Version 1)
Quarter: 2013Q4

REPORT INFORMATION
  Report Type: Spontaneous
  Country: IT (occurrence: IT)
  Receive Date: 20131204
  Receipt Date: 20131204
  Transmission Date: 20140711
  Serious: Yes (Other)
  Sender: FDA-Public Use
  Company Number: IT-ASTRAZENECA-2013SE87596

PATIENT
  Sex: Male

DRUGS (10)
  1. BRILIQUE [Suspect]
     Indication: ACUTE CORONARY SYNDROME
     Route: 048
  2. BRILIQUE [Suspect]
     Indication: ACUTE CORONARY SYNDROME
     Route: 048
  3. CARVEDILOLE [Concomitant]
  4. LASIX [Concomitant]
  5. AMIODARONE [Concomitant]
  6. IBERSARATAN [Concomitant]
  7. EXETIMIBE [Concomitant]
  8. SIMVASTIN [Concomitant]
  9. ASA [Concomitant]
  10. ALLOPURINOL [Concomitant]

REACTIONS (2)
  - Gout [Not Recovered/Not Resolved]
  - Pain in extremity [Not Recovered/Not Resolved]
